FAERS Safety Report 14299706 (Version 1)
Quarter: 2017Q4

REPORT INFORMATION
  Report Type: Spontaneous
  Country: US (occurrence: US)
  Receive Date: 20171219
  Receipt Date: 20171219
  Transmission Date: 20180321
  Serious: Yes (Hospitalization, Other)
  Sender: FDA-Public Use
  Company Number: US-009507513-1712USA007251

PATIENT
  Sex: Female

DRUGS (1)
  1. SINGULAIR [Suspect]
     Active Substance: MONTELUKAST SODIUM

REACTIONS (6)
  - Cardiomyopathy [Unknown]
  - Mental impairment [Unknown]
  - Pain in extremity [Unknown]
  - General physical health deterioration [Unknown]
  - Nerve injury [Unknown]
  - Pancreatitis acute [Unknown]
